FAERS Safety Report 9645815 (Version 3)
Quarter: 2014Q3

REPORT INFORMATION
  Report Type: Spontaneous
  Country: FR (occurrence: FR)
  Receive Date: 20131025
  Receipt Date: 20140720
  Transmission Date: 20150326
  Serious: Yes (Hospitalization)
  Sender: FDA-Public Use
  Company Number: FR-IPSEN BIOPHARMACEUTICALS, INC.-2013-4658

PATIENT
  Sex: Female

DRUGS (1)
  1. SOMATULINE L.P. 120MG [Suspect]
     Active Substance: LANREOTIDE ACETATE
     Indication: NEUROENDOCRINE TUMOUR
     Dosage: 120 MG
     Route: 065
     Dates: start: 2003

REACTIONS (2)
  - Carcinoid syndrome [Recovered/Resolved with Sequelae]
  - Prescribed overdose [Unknown]

NARRATIVE: CASE EVENT DATE: 201310
